FAERS Safety Report 6853487-9 (Version None)
Quarter: 2010Q3

REPORT INFORMATION
  Report Type: 
  Country: None (occurrence: None)
  Receive Date: 20100717
  Receipt Date: 20071213
  Transmission Date: 20110219
  Serious: No
  Sender: FDA-Public Use
  Company Number: US-PFIZER INC-2007104938

PATIENT
  Sex: Female
  Weight: 72.727 kg

DRUGS (5)
  1. CHANTIX [Suspect]
     Indication: ALCOHOLISM
     Route: 048
     Dates: start: 20071213
  2. BLACK COHOSH [Concomitant]
  3. EVENING PRIMROSE OIL [Concomitant]
  4. FISH OIL [Concomitant]
  5. ZANTAC [Concomitant]
     Indication: GASTROOESOPHAGEAL REFLUX DISEASE

REACTIONS (3)
  - BALANCE DISORDER [None]
  - INAPPROPRIATE SCHEDULE OF DRUG ADMINISTRATION [None]
  - NAUSEA [None]
